FAERS Safety Report 6494049-5 (Version None)
Quarter: 2009Q4

REPORT INFORMATION
  Report Type: 
  Country: None (occurrence: None)
  Receive Date: 20091214
  Receipt Date: 20090612
  Transmission Date: 20100525
  Serious: No
  Sender: FDA-Public Use
  Company Number: US-BRISTOL-MYERS SQUIBB COMPANY-14444376

PATIENT
  Age: 43 Year
  Sex: Female
  Weight: 75 kg

DRUGS (5)
  1. ABILIFY [Suspect]
     Indication: DEPRESSION
  2. SYNTHROID [Concomitant]
  3. PREDNISONE [Concomitant]
  4. METHOTREXATE [Concomitant]
  5. MOBIC [Concomitant]
     Indication: PAIN

REACTIONS (2)
  - DIZZINESS [None]
  - TREMOR [None]
